FAERS Safety Report 9312127 (Version 3)
Quarter: 2014Q2

REPORT INFORMATION
  Report Type: Spontaneous
  Country: US (occurrence: US)
  Receive Date: 20130528
  Receipt Date: 20140630
  Transmission Date: 20141212
  Serious: No
  Sender: FDA-Public Use
  Company Number: US-009507513-1305USA013630

PATIENT
  Sex: Male

DRUGS (1)
  1. PROPECIA [Suspect]
     Indication: ALOPECIA
     Dosage: 1 MG, UNK
     Route: 048
     Dates: start: 20080829, end: 20100506

REACTIONS (10)
  - Skin papilloma [Unknown]
  - Erectile dysfunction [Not Recovered/Not Resolved]
  - Sexual dysfunction [Not Recovered/Not Resolved]
  - Skin papilloma [Unknown]
  - Hyperlipidaemia [Not Recovered/Not Resolved]
  - Dermatitis [Unknown]
  - Joint injury [Not Recovered/Not Resolved]
  - Hypersensitivity [Unknown]
  - Fracture [Unknown]
  - Alcohol abuse [Unknown]
